FAERS Safety Report 4376331-0 (Version None)
Quarter: 2004Q2

REPORT INFORMATION
  Report Type: 
  Country: None (occurrence: None)
  Receive Date: 20040603
  Receipt Date: 20031027
  Transmission Date: 20050107
  Serious: Yes (Hospitalization)
  Sender: FDA-Public Use
  Company Number: 200319333US

PATIENT
  Age: 78 Year
  Sex: Male

DRUGS (11)
  1. LOVENOX [Suspect]
     Dosage: 120 MG BID SC
     Route: 058
     Dates: start: 20030625, end: 20030629
  2. WARFARIN SODIUM [Concomitant]
  3. ACETYLSALICYLIC ACID SRT [Concomitant]
  4. OXYCODONE [Concomitant]
  5. TRAZODONE HCL [Concomitant]
  6. ATENOLOL [Concomitant]
  7. SIMETHICONE [Concomitant]
  8. ALLOPURINOL [Concomitant]
  9. COLESTIPOL [Concomitant]
  10. METHYL SALICYLATE [Concomitant]
  11. RANITIDINE [Concomitant]

REACTIONS (1)
  - HAEMATOCHEZIA [None]
